FAERS Safety Report 9863355 (Version 1)
Quarter: 2014Q1

REPORT INFORMATION
  Report Type: Spontaneous
  Country: BR (occurrence: BR)
  Receive Date: 20140203
  Receipt Date: 20140203
  Transmission Date: 20141002
  Serious: Yes (Hospitalization)
  Sender: FDA-Public Use
  Company Number: BR-009507513-1401BRA012936

PATIENT
  Age: 6 Year
  Sex: Female
  Weight: 19.5 kg

DRUGS (2)
  1. NASONEX [Suspect]
     Indication: RHINITIS ALLERGIC
     Dosage: UNK, UNKNOWN
     Route: 045
     Dates: start: 2008
  2. NASONEX [Suspect]
     Dosage: 1 PUFF IN EACH NOSTRIL, QD
     Route: 045
     Dates: start: 20140123

REACTIONS (8)
  - Pneumonia [Recovered/Resolved]
  - Chromaturia [Not Recovered/Not Resolved]
  - Blood cholesterol increased [Unknown]
  - Blood triglycerides increased [Unknown]
  - Urinary tract infection [Recovered/Resolved]
  - Constipation [Not Recovered/Not Resolved]
  - Drug administered to patient of inappropriate age [Unknown]
  - Off label use [Unknown]
